FAERS Safety Report 4314564-X (Version None)
Quarter: 2004Q1

REPORT INFORMATION
  Report Type: 
  Country: None (occurrence: None)
  Receive Date: 20040309
  Receipt Date: 20040302
  Transmission Date: 20041129
  Serious: Yes (Hospitalization)
  Sender: FDA-Public Use
  Company Number: WAES 0403FRA00017

PATIENT
  Age: 48 Year
  Sex: Male

DRUGS (10)
  1. ACETAMINOPHEN [Concomitant]
     Indication: PYREXIA
     Route: 042
     Dates: start: 20040110
  2. AMPHOTERICIN B AND CHOLESTEROL AND DISTEAROYLPHOSPHATIDYLGLYCEROL AND [Suspect]
     Indication: ASPERGILLOSIS
     Route: 041
     Dates: start: 20040112, end: 20040127
  3. CANCIDAS [Suspect]
     Indication: ASPERGILLOSIS
     Route: 041
     Dates: start: 20040120, end: 20040127
  4. PRIMAXIN [Suspect]
     Route: 041
     Dates: start: 20040109, end: 20040124
  5. CIPROFLOXACIN HYDROCHLORIDE [Suspect]
     Route: 042
     Dates: start: 20040109, end: 20040124
  6. FERROUS SULFATE [Concomitant]
     Route: 048
     Dates: start: 20040111
  7. HYDROXYZINE HYDROCHLORIDE [Concomitant]
     Route: 048
     Dates: start: 20040112
  8. ITRACONAZOLE [Suspect]
     Indication: ASPERGILLOSIS
     Route: 048
     Dates: start: 20040109, end: 20040111
  9. ITRACONAZOLE [Suspect]
     Route: 048
     Dates: start: 20040112, end: 20040120
  10. TESTOSTERONE UNDECANOATE [Concomitant]
     Route: 048
     Dates: start: 20040122

REACTIONS (1)
  - HYPOKALAEMIA [None]
